FAERS Safety Report 4274394-4 (Version None)
Quarter: 2004Q1

REPORT INFORMATION
  Report Type: 
  Country: None (occurrence: None)
  Receive Date: 20040120
  Receipt Date: 20031219
  Transmission Date: 20041129
  Serious: Yes (Other)
  Sender: FDA-Public Use
  Company Number: DK-BRISTOL-MYERS SQUIBB COMPANY-12466660

PATIENT
  Age: 62 Year
  Sex: Female

DRUGS (3)
  1. CARDIOLITE [Suspect]
     Indication: SCINTIGRAPHY
     Dosage: ROUTE: ^INJECTION^
     Dates: start: 20031127, end: 20031127
  2. FUROSEMIDE [Concomitant]
  3. KALEORID [Concomitant]

REACTIONS (5)
  - BURNING SENSATION [None]
  - FACIAL PALSY [None]
  - HYPOAESTHESIA [None]
  - ORAL DYSAESTHESIA [None]
  - PARESIS [None]
